FAERS Safety Report 6403701-9 (Version None)
Quarter: 2009Q4

REPORT INFORMATION
  Report Type: 
  Country: None (occurrence: None)
  Receive Date: 20091016
  Receipt Date: 20091008
  Transmission Date: 20100525
  Serious: Yes (Other)
  Sender: FDA-Public Use
  Company Number: US-ASTRAZENECA-2008UW20411

PATIENT
  Age: 37 Year
  Sex: Female
  Weight: 95.3 kg

DRUGS (8)
  1. SEROQUEL [Suspect]
     Indication: AFFECTIVE DISORDER
     Route: 048
     Dates: start: 20030715, end: 20070514
  2. SEROQUEL [Suspect]
     Indication: BIPOLAR DISORDER
     Route: 048
     Dates: start: 20030715, end: 20070514
  3. SEROQUEL [Suspect]
     Indication: DEPRESSION
     Route: 048
     Dates: start: 20030715, end: 20070514
  4. ABILIFY [Concomitant]
     Dosage: 15-30 MG
     Dates: start: 20050401, end: 20070101
  5. CLOZARIL [Concomitant]
     Dates: start: 20040101, end: 20060101
  6. GEODON [Concomitant]
  7. RISPERDAL [Concomitant]
     Dates: start: 20020601, end: 20031001
  8. ZOLOFT [Concomitant]
     Dates: start: 20020101, end: 20030101

REACTIONS (7)
  - BLOOD CHOLESTEROL INCREASED [None]
  - BLOOD TRIGLYCERIDES INCREASED [None]
  - GASTROOESOPHAGEAL REFLUX DISEASE [None]
  - HYPERLIPIDAEMIA [None]
  - OBESITY [None]
  - TYPE 2 DIABETES MELLITUS [None]
  - UTERINE CANCER [None]
